FAERS Safety Report 7478409-1 (Version None)
Quarter: 2011Q2

REPORT INFORMATION
  Report Type: 
  Country: None (occurrence: None)
  Receive Date: 20110513
  Receipt Date: 20100525
  Transmission Date: 20111010
  Serious: No
  Sender: FDA-Public Use
  Company Number: US-PFIZER INC-2010066969

PATIENT
  Sex: Male

DRUGS (2)
  1. CELEBREX [Suspect]
     Dosage: DAILY
  2. MINOXIDIL [Suspect]
     Indication: ALOPECIA
     Dosage: AT NIGHT

REACTIONS (1)
  - OEDEMA PERIPHERAL [None]
